FAERS Safety Report 6982217-5 (Version None)
Quarter: 2010Q3

REPORT INFORMATION
  Report Type: 
  Country: None (occurrence: None)
  Receive Date: 20100914
  Receipt Date: 20091125
  Transmission Date: 20110219
  Serious: No
  Sender: FDA-Public Use
  Company Number: US-PFIZER INC-2009304049

PATIENT
  Sex: Female
  Weight: 77.1 kg

DRUGS (6)
  1. LYRICA [Suspect]
     Indication: PAIN IN EXTREMITY
     Dosage: 50 MG, 1X/DAY
     Dates: start: 20091101
  2. METFORMIN [Concomitant]
     Dosage: 1000 MG, 2X/DAY
  3. SIMVASTATIN [Concomitant]
     Dosage: UNK
  4. RAMIPRIL [Concomitant]
     Indication: RENAL DISORDER
     Dosage: UNK
  5. FOSAMAX [Concomitant]
     Dosage: UNK
  6. VITAMINS WITH MINERALS [Concomitant]
     Dosage: UNK

REACTIONS (1)
  - PAIN IN EXTREMITY [None]
